FAERS Safety Report 13199202 (Version 2)
Quarter: 2017Q1

REPORT INFORMATION
  Report Type: Report from Study
  Country: ES (occurrence: ES)
  Receive Date: 20170208
  Receipt Date: 20170221
  Transmission Date: 20170428
  Serious: Yes (Death, Hospitalization)
  Sender: FDA-Public Use
  Company Number: ES-CELGENEUS-ESP-2017020127

PATIENT
  Age: 81 Year
  Sex: Male
  Weight: 85 kg

DRUGS (2)
  1. AZACITIDINE. [Suspect]
     Active Substance: AZACITIDINE
     Indication: MYELODYSPLASTIC SYNDROME
     Dosage: 2.6786 MILLIGRAM/SQ. METER
     Route: 041
     Dates: start: 20141020
  2. AZACITIDINE. [Suspect]
     Active Substance: AZACITIDINE
     Dosage: 2.6786 MILLIGRAM/SQ. METER
     Route: 041
     Dates: start: 20170116

REACTIONS (1)
  - Lung adenocarcinoma [Fatal]

NARRATIVE: CASE EVENT DATE: 20141020
